FAERS Safety Report 4416894-X (Version None)
Quarter: 2004Q2

REPORT INFORMATION
  Report Type: 
  Country: None (occurrence: None)
  Receive Date: 20040628
  Receipt Date: 20040308
  Transmission Date: 20050107
  Serious: No
  Sender: FDA-Public Use
  Company Number: KII-2004-0007955

PATIENT
  Age: 25 Year
  Sex: Female

DRUGS (3)
  1. SPECTRACEF [Suspect]
     Indication: SINUSITIS
     Dosage: 200 MG, BID
  2. BROMPHEN DX (BROMPHENIRAMINE MALEATE, DEXTROMETHORPHA) [Suspect]
     Indication: COUGH
  3. METRONIDAZOLE [Concomitant]

REACTIONS (3)
  - DIARRHOEA [None]
  - NAUSEA [None]
  - VOMITING [None]
